FAERS Safety Report 5846137-1 (Version None)
Quarter: 2008Q3

REPORT INFORMATION
  Report Type: 
  Country: None (occurrence: None)
  Receive Date: 20080813
  Receipt Date: 20080731
  Transmission Date: 20090109
  Serious: Yes (Other)
  Sender: FDA-Public Use
  Company Number: DSA_32215_2008

PATIENT
  Age: 63 Year
  Sex: Female

DRUGS (2)
  1. DILTIAZEM [Suspect]
     Indication: ATRIAL FIBRILLATION
     Dosage: 120 MG QD ORAL
     Route: 048
     Dates: start: 20080128, end: 20080211
  2. DILTIAZEM HCL [Suspect]
     Indication: DRUG USE FOR UNKNOWN INDICATION
     Dosage: BLACK FORMULATION

REACTIONS (4)
  - BREAST SWELLING [None]
  - FLUID RETENTION [None]
  - PALPITATIONS [None]
  - PHARMACEUTICAL PRODUCT COMPLAINT [None]
